FAERS Safety Report 15335186 (Version 1)
Quarter: 2018Q3

REPORT INFORMATION
  Report Type: Spontaneous
  Country: US (occurrence: US)
  Receive Date: 20180827
  Receipt Date: 20180827
  Transmission Date: 20181010
  Serious: Yes (Disabling)
  Sender: FDA-Public Use
  Company Number: None

PATIENT
  Age: 69 Year
  Sex: Female
  Weight: 58.5 kg

DRUGS (18)
  1. GLUCOSAMINE SULFATE POTASSIUM [Concomitant]
  2. PLANT?SOURCED MINERALS [Concomitant]
  3. GLUCOSAMINE SULFATE [Concomitant]
     Active Substance: GLUCOSAMINE SULFATE
  4. NITROFURANTOIN, GENERIC FOR MACROBID [Suspect]
     Active Substance: NITROFURANTOIN\NITROFURANTOIN MONOHYDRATE
     Indication: URINARY TRACT INFECTION
     Dosage: ?          QUANTITY:20 TABLET(S);?
     Route: 048
     Dates: start: 20180815, end: 20180821
  5. POMEGRANATE GRAPE SEED + TRANS?RESVERATROL EXTRACT [Concomitant]
  6. ROSUVASTATIN. [Concomitant]
     Active Substance: ROSUVASTATIN
  7. PHOSPHORUS [Concomitant]
     Active Substance: PHOSPHORUS
  8. MILK THISTLE [Concomitant]
     Active Substance: DIETARY SUPPLEMENT\HERBALS\MILK THISTLE
  9. ONCE DAILY MULTI VITAMIN [Concomitant]
  10. VITAMIN D3 [Concomitant]
     Active Substance: CHOLECALCIFEROL
  11. BETA CAROTENE FROM D. SALINE ALGAE [Concomitant]
  12. MAGNESIUM CITRATE. [Concomitant]
     Active Substance: MAGNESIUM CITRATE
  13. MIXED CAROTENOIDS [Concomitant]
  14. CALCIUM MAGNESIUM VITAMIN [Concomitant]
  15. VITAMIN D [Concomitant]
     Active Substance: CHOLECALCIFEROL
  16. MAGNESIUM [Concomitant]
     Active Substance: MAGNESIUM
  17. 42 FRUITS + VEGGIES VARIOUS [Concomitant]
  18. MEGA EFA OMEGA?3 EPA + DHA [Concomitant]

REACTIONS (7)
  - Myalgia [None]
  - Pyrexia [None]
  - Chills [None]
  - Hypoaesthesia [None]
  - Pain in extremity [None]
  - Feeding disorder [None]
  - Rash papular [None]

NARRATIVE: CASE EVENT DATE: 20180821
